FAERS Safety Report 21683221 (Version 2)
Quarter: 2022Q4

REPORT INFORMATION
  Report Type: Spontaneous
  Country: FR (occurrence: FR)
  Receive Date: 20221205
  Receipt Date: 20221230
  Transmission Date: 20230113
  Serious: Yes (Hospitalization)
  Sender: FDA-Public Use
  Company Number: None

PATIENT
  Age: 74 Year
  Sex: Male
  Weight: 79 kg

DRUGS (5)
  1. MEROPENEM [Suspect]
     Active Substance: MEROPENEM
     Indication: Pneumonia aspiration
     Dosage: 6 G, 1X/DAY
     Dates: start: 20221014, end: 20221023
  2. MEROPENEM [Suspect]
     Active Substance: MEROPENEM
     Dosage: 6 G, 1X/DAY
     Dates: start: 20221028
  3. DARBEPOETIN ALFA [Suspect]
     Active Substance: DARBEPOETIN ALFA
     Indication: Anaemia of malignant disease
     Dosage: UNK
     Dates: start: 20221102
  4. EPREX [Suspect]
     Active Substance: ERYTHROPOIETIN
     Indication: Anaemia of malignant disease
     Dosage: 30000 IU, WEEKLY
     Route: 058
     Dates: start: 20220506, end: 20220704
  5. EPREX [Suspect]
     Active Substance: ERYTHROPOIETIN
     Dosage: 60000 IU, WEEKLY
     Route: 058
     Dates: start: 20220704, end: 202209

REACTIONS (2)
  - Aplasia pure red cell [Unknown]
  - Off label use [Unknown]

NARRATIVE: CASE EVENT DATE: 20221014
